FAERS Safety Report 6814409-X (Version None)
Quarter: 2010Q3

REPORT INFORMATION
  Report Type: 
  Country: None (occurrence: None)
  Receive Date: 20100702
  Receipt Date: 20100625
  Transmission Date: 20110219
  Serious: Yes (Death, Hospitalization)
  Sender: FDA-Public Use
  Company Number: JP-BRISTOL-MYERS SQUIBB COMPANY-15168362

PATIENT
  Age: 63 Year
  Sex: Male

DRUGS (6)
  1. BRIPLATIN [Suspect]
     Indication: OESOPHAGEAL CARCINOMA
     Route: 041
  2. ETOPOSIDE [Suspect]
     Indication: OESOPHAGEAL CARCINOMA
     Dates: start: 20080801, end: 20081101
  3. CARBOPLATIN [Suspect]
     Indication: OESOPHAGEAL CARCINOMA
     Dates: start: 20080801, end: 20081101
  4. RADIOTHERAPY [Suspect]
     Indication: OESOPHAGEAL CARCINOMA
     Dosage: FEB08-JUN08; AUG08-NOV08
     Dates: start: 20080201, end: 20081101
  5. AMRUBICIN HCL [Suspect]
     Indication: OESOPHAGEAL CARCINOMA
     Dates: start: 20080801, end: 20081101
  6. IRINOTECAN HCL [Suspect]
     Indication: OESOPHAGEAL CARCINOMA
     Dosage: FORM=INJ
     Route: 041

REACTIONS (4)
  - DEATH [None]
  - DEHYDRATION [None]
  - NAUSEA [None]
  - VOMITING [None]
